FAERS Safety Report 14573540 (Version 1)
Quarter: 2018Q1

REPORT INFORMATION
  Report Type: Spontaneous
  Country: US (occurrence: US)
  Receive Date: 20180226
  Receipt Date: 20180226
  Transmission Date: 20180509
  Serious: No
  Sender: FDA-Public Use
  Company Number: US-BAYER-2018-038000

PATIENT
  Age: 55 Year
  Sex: Female
  Weight: 56.24 kg

DRUGS (3)
  1. ALEVE [Suspect]
     Active Substance: NAPROXEN SODIUM
     Indication: PAIN
     Dosage: 2 DF, UNK
     Route: 048
  2. ALEVE [Suspect]
     Active Substance: NAPROXEN SODIUM
     Indication: HEADACHE
  3. ALEVE [Suspect]
     Active Substance: NAPROXEN SODIUM
     Indication: OROPHARYNGEAL PAIN

REACTIONS (1)
  - Drug ineffective [Unknown]
